FAERS Safety Report 8811628 (Version 3)
Quarter: 2012Q4

REPORT INFORMATION
  Report Type: Spontaneous
  Country: IT (occurrence: None)
  Receive Date: 20120925
  Receipt Date: 20121019
  Transmission Date: 20130627
  Serious: Yes (Death)
  Sender: FDA-Public Use
  Company Number: TPA2012A06790

PATIENT
  Age: 78 Year
  Sex: Male

DRUGS (3)
  1. ADENURIC [Suspect]
     Indication: HYPERURICEMIA
     Route: 048
     Dates: start: 20120822, end: 20120822
  2. CARDICOR (BISOPROLOL FUMARATE) [Concomitant]
  3. LASIX (FUROSEMIDE) [Concomitant]

REACTIONS (9)
  - Hepatitis cholestatic [None]
  - Renal failure chronic [None]
  - Haemodialysis [None]
  - Confusional state [None]
  - Hyperammonaemia [None]
  - Metabolic acidosis [None]
  - Haemodynamic instability [None]
  - Device malfunction [None]
  - Nephropathy toxic [None]
